FAERS Safety Report 8232488-2 (Version None)
Quarter: 2012Q1

REPORT INFORMATION
  Report Type: 
  Country: None (occurrence: None)
  Receive Date: 20120323
  Receipt Date: 20120312
  Transmission Date: 20120608
  Serious: Yes (Hospitalization, Other)
  Sender: FDA-Public Use
  Company Number: CA-SANOFI-AVENTIS-2012SA016688

PATIENT
  Age: 72 Year
  Sex: Female

DRUGS (18)
  1. ALENDRONATE SODIUM [Concomitant]
  2. ESOMEPRAZOLE SODIUM [Concomitant]
  3. HYDROMORPHONE HCL [Concomitant]
  4. LYRICA [Suspect]
  5. OXYBUTYNIN [Concomitant]
  6. ATENOLOL [Concomitant]
  7. AMILORIDE HYDROCHLORIDE [Concomitant]
  8. ARAVA [Suspect]
     Route: 048
  9. PREDNISONE [Suspect]
  10. CALCIUM CARBONATE [Concomitant]
  11. DILAUDID [Suspect]
  12. ORENCIA [Suspect]
     Indication: RHEUMATOID ARTHRITIS
     Dosage: EVERY TWO WEEKS
     Route: 042
     Dates: start: 20110801
  13. ACETAMINOPHEN [Concomitant]
  14. PRAMIPEXOLE DIHYDROCHLORIDE [Concomitant]
  15. CALCITONIN SALMON [Concomitant]
  16. LEVOTHYROXINE SODIUM [Concomitant]
     Route: 048
     Dates: end: 20120101
  17. CYMBALTA [Suspect]
  18. NAPROXEN [Concomitant]

REACTIONS (13)
  - SLEEP APNOEA SYNDROME [None]
  - VISUAL IMPAIRMENT [None]
  - HAEMOGLOBIN DECREASED [None]
  - WOUND COMPLICATION [None]
  - INFLAMMATION [None]
  - VOMITING [None]
  - ASTHENIA [None]
  - URINARY TRACT INFECTION [None]
  - ABDOMINAL PAIN [None]
  - DIARRHOEA [None]
  - NAUSEA [None]
  - BURSITIS [None]
  - WEIGHT DECREASED [None]
